FAERS Safety Report 17637448 (Version 1)
Quarter: 2020Q2

REPORT INFORMATION
  Report Type: Spontaneous
  Country: DE (occurrence: DE)
  Receive Date: 20200407
  Receipt Date: 20200407
  Transmission Date: 20200713
  Serious: Yes (Congenital Anomaly)
  Sender: FDA-Public Use
  Company Number: DE-PFIZER INC-2020137092

PATIENT
  Sex: Female
  Weight: 1.53 kg

DRUGS (5)
  1. TRACTOCILE [Concomitant]
     Active Substance: ATOSIBAN
     Indication: TOCOLYSIS
     Dosage: UNK, 29TH TO 33RD GESTATIONAL WEEK (3RD TRIMESTER)
     Route: 064
  2. UTROGEST [Concomitant]
     Active Substance: PROGESTERONE
     Indication: HAEMORRHAGE IN PREGNANCY
     Dosage: UNK, 29TH TO 33RD GESTATIONAL WEEK (3RD TRIMESTER)
     Route: 064
  3. CELESTAN [BETAMETHASONE] [Concomitant]
     Indication: MATERNAL THERAPY TO ENHANCE FOETAL LUNG MATURITY
     Dosage: 12 MG/D (28.5 TO 28.6 GESTATIONAL WEEK)
     Route: 064
     Dates: start: 20191113, end: 20191114
  4. FOLIO FORTE [Concomitant]
     Active Substance: FOLIC ACID\VITAMINS
     Indication: PROPHYLAXIS OF NEURAL TUBE DEFECT
     Dosage: UNK (0 TO 18.2 GESTATIONAL WEEK)
     Route: 064
     Dates: start: 20190426, end: 20190901
  5. SERTRALINE HCL [Suspect]
     Active Substance: SERTRALINE HYDROCHLORIDE
     Indication: DEPRESSION
     Dosage: 100 MG, 1X/DAY (0 TO 33RD GESTATIONAL WEEK)
     Route: 064
     Dates: start: 20190426, end: 20191213

REACTIONS (2)
  - Maternal exposure during pregnancy [Unknown]
  - Fallot^s tetralogy [Not Recovered/Not Resolved]

NARRATIVE: CASE EVENT DATE: 20190426
